FAERS Safety Report 10471568 (Version 3)
Quarter: 2015Q1

REPORT INFORMATION
  Report Type: Spontaneous
  Country: US (occurrence: US)
  Receive Date: 20140923
  Receipt Date: 20150304
  Transmission Date: 20150720
  Serious: Yes (Other)
  Sender: FDA-Public Use
  Company Number: US-LUNDBECK-DKLU1103671

PATIENT
  Age: 19 Year
  Sex: Female

DRUGS (24)
  1. SABRIL [Suspect]
     Active Substance: VIGABATRIN
     Route: 048
  2. SABRIL [Suspect]
     Active Substance: VIGABATRIN
     Route: 048
  3. SABRIL [Suspect]
     Active Substance: VIGABATRIN
     Route: 048
  4. LAMICTAL [Concomitant]
     Active Substance: LAMOTRIGINE
     Indication: PRODUCT USED FOR UNKNOWN INDICATION
     Route: 065
  5. LEVOCARNITINE. [Concomitant]
     Active Substance: LEVOCARNITINE
     Indication: PRODUCT USED FOR UNKNOWN INDICATION
     Route: 048
  6. LISINOPRIL. [Concomitant]
     Active Substance: LISINOPRIL
     Indication: PRODUCT USED FOR UNKNOWN INDICATION
     Route: 048
  7. SABRIL [Suspect]
     Active Substance: VIGABATRIN
     Route: 048
  8. BANZEL [Suspect]
     Active Substance: RUFINAMIDE
     Indication: SEIZURE
     Route: 065
  9. BANZEL [Suspect]
     Active Substance: RUFINAMIDE
     Route: 065
  10. BACLOFEN. [Concomitant]
     Active Substance: BACLOFEN
  11. SABRIL [Suspect]
     Active Substance: VIGABATRIN
     Route: 048
  12. BANZEL [Suspect]
     Active Substance: RUFINAMIDE
     Route: 065
  13. BANZEL [Suspect]
     Active Substance: RUFINAMIDE
     Dosage: CURRENTLY AT 4 ML AM/1-1.5 ML HS; DECREASE AM DOSE TO 2 ML X 5 DAYS
     Route: 065
     Dates: end: 20140918
  14. DIASTAT [Concomitant]
     Active Substance: DIAZEPAM
     Indication: SEIZURE
     Route: 054
  15. LANSOPRAZOLE. [Concomitant]
     Active Substance: LANSOPRAZOLE
     Indication: PRODUCT USED FOR UNKNOWN INDICATION
     Route: 048
  16. SABRIL [Suspect]
     Active Substance: VIGABATRIN
     Indication: GENERALISED TONIC-CLONIC SEIZURE
     Route: 048
     Dates: start: 20140523
  17. SABRIL [Suspect]
     Active Substance: VIGABATRIN
     Route: 048
  18. SABRIL [Suspect]
     Active Substance: VIGABATRIN
     Route: 048
  19. BACLOFEN. [Concomitant]
     Active Substance: BACLOFEN
     Indication: PRODUCT USED FOR UNKNOWN INDICATION
  20. BANZEL [Suspect]
     Active Substance: RUFINAMIDE
     Route: 065
  21. BANZEL [Suspect]
     Active Substance: RUFINAMIDE
     Route: 065
  22. SABRIL [Suspect]
     Active Substance: VIGABATRIN
     Route: 048
  23. BACLOFEN. [Concomitant]
     Active Substance: BACLOFEN
  24. AMITRIPTYLINE [Concomitant]
     Active Substance: AMITRIPTYLINE
     Indication: PRODUCT USED FOR UNKNOWN INDICATION
     Route: 048

REACTIONS (6)
  - Urinary retention [Recovered/Resolved]
  - Tonic convulsion [Unknown]
  - Sedation [Recovered/Resolved]
  - Myoclonic epilepsy [Unknown]
  - Somnolence [Recovered/Resolved]
  - Seizure [Unknown]

NARRATIVE: CASE EVENT DATE: 20140904
